FAERS Safety Report 7553661-2 (Version None)
Quarter: 2011Q2

REPORT INFORMATION
  Report Type: 
  Country: None (occurrence: None)
  Receive Date: 20110617
  Receipt Date: 20110406
  Transmission Date: 20111010
  Serious: Yes (Hospitalization, Other)
  Sender: FDA-Public Use
  Company Number: US-BAYER-201027114NA

PATIENT
  Age: 28 Year
  Sex: Female
  Weight: 108.84 kg

DRUGS (11)
  1. GEODON [Concomitant]
  2. CLONAZEPAM [Concomitant]
  3. BUPROPION HYDROCHLORIDE [Concomitant]
  4. BUSPIRONE HYDROCHLORIDE [Concomitant]
  5. ABILIFY [Concomitant]
  6. YASMIN [Suspect]
     Indication: ORAL CONTRACEPTION
     Dosage: UNK
     Route: 048
     Dates: start: 20080201, end: 20080801
  7. LEXAPRO [Concomitant]
  8. AMITRIPTYLINE HCL [Concomitant]
  9. YAZ [Suspect]
     Indication: CONTRACEPTION
     Dosage: UNK
     Route: 048
     Dates: start: 20080201
  10. EFFEXOR XR [Concomitant]
  11. CYMBALTA [Concomitant]

REACTIONS (8)
  - ABDOMINAL PAIN [None]
  - CHOLELITHIASIS [None]
  - NAUSEA [None]
  - PAIN [None]
  - GALLBLADDER INJURY [None]
  - VOMITING [None]
  - DIARRHOEA [None]
  - CHOLECYSTITIS CHRONIC [None]
